FAERS Safety Report 12681563 (Version 1)
Quarter: 2016Q3

REPORT INFORMATION
  Report Type: Spontaneous
  Country: CH (occurrence: FR)
  Receive Date: 20160824
  Receipt Date: 20160824
  Transmission Date: 20161109
  Serious: Yes (Hospitalization)
  Sender: FDA-Public Use
  Company Number: CH-LPDUSPRD-20160745

PATIENT
  Age: 90 Year
  Sex: Female

DRUGS (10)
  1. LASILIX [Concomitant]
     Active Substance: FUROSEMIDE
  2. BISOPROLOL [Concomitant]
     Active Substance: BISOPROLOL
  3. DIFFU-K [Concomitant]
     Active Substance: POTASSIUM CHLORIDE
  4. SERESTA [Concomitant]
     Active Substance: OXAZEPAM
  5. METEOXANE [Concomitant]
     Active Substance: AMOBARBITAL\BELLADONNA LEAF\DIMETHICONE\ERGOTAMINE TARTRATE
  6. FERINJECT [Suspect]
     Active Substance: FERRIC CARBOXYMALTOSE
     Dosage: 1000MG
     Route: 041
     Dates: start: 20160624, end: 20160624
  7. PREVISCAN [Concomitant]
     Active Substance: FLUINDIONE
  8. DOLIPRANE [Concomitant]
     Active Substance: ACETAMINOPHEN
  9. LEVOTHYROXINE. [Concomitant]
     Active Substance: LEVOTHYROXINE
  10. SPASFON [Concomitant]
     Active Substance: PHLOROGLUCINOL

REACTIONS (3)
  - Acute coronary syndrome [Unknown]
  - Anaphylactic shock [Recovered/Resolved]
  - Off label use [Unknown]

NARRATIVE: CASE EVENT DATE: 20160624
